FAERS Safety Report 21978502 (Version 1)
Quarter: 2023Q1

REPORT INFORMATION
  Report Type: Spontaneous
  Country: US (occurrence: US)
  Receive Date: 20230210
  Receipt Date: 20230210
  Transmission Date: 20230417
  Serious: Yes (Other)
  Sender: FDA-Public Use
  Company Number: US-002147023-NVSC2023US028292

PATIENT
  Sex: Male

DRUGS (2)
  1. PAZOPANIB [Suspect]
     Active Substance: PAZOPANIB
     Indication: Alveolar rhabdomyosarcoma
     Dosage: UNK (MAINTENANCE THERAPY)
     Route: 048
  2. PAZOPANIB [Suspect]
     Active Substance: PAZOPANIB
     Indication: Metastases to bone

REACTIONS (3)
  - Hyperbilirubinaemia [Unknown]
  - Skin hypopigmentation [Unknown]
  - Product use in unapproved indication [Unknown]
